FAERS Safety Report 7547934-7 (Version None)
Quarter: 2011Q2

REPORT INFORMATION
  Report Type: 
  Country: None (occurrence: None)
  Receive Date: 20110615
  Receipt Date: 20110608
  Transmission Date: 20111010
  Serious: No
  Sender: FDA-Public Use
  Company Number: US-BIOGENIDEC-2011BI021407

PATIENT
  Sex: Female

DRUGS (2)
  1. TYSABRI [Suspect]
     Indication: MULTIPLE SCLEROSIS
     Route: 042
     Dates: start: 20100729
  2. TYSABRI [Suspect]
     Route: 042
     Dates: start: 20090612, end: 20100223

REACTIONS (6)
  - OEDEMA PERIPHERAL [None]
  - TREMOR [None]
  - DYSARTHRIA [None]
  - NIGHTMARE [None]
  - SLEEP TERROR [None]
  - FALL [None]
